FAERS Safety Report 5209916-X (Version None)
Quarter: 2007Q1

REPORT INFORMATION
  Report Type: 
  Country: None (occurrence: None)
  Receive Date: 20070116
  Receipt Date: 20070108
  Transmission Date: 20070707
  Serious: Yes (Disabling)
  Sender: FDA-Public Use
  Company Number: ITWYE064708JAN07

PATIENT
  Sex: Female

DRUGS (1)
  1. ENBREL [Suspect]
     Indication: PSORIATIC ARTHROPATHY
     Route: 058
     Dates: start: 20060801, end: 20061001

REACTIONS (4)
  - DEMYELINATION [None]
  - DYSPLASIA [None]
  - FACIAL PARESIS [None]
  - VERTIGO [None]
